FAERS Safety Report 10443336 (Version 1)
Quarter: 2014Q3

REPORT INFORMATION
  Report Type: Report from Study
  Country: BE (occurrence: BE)
  Receive Date: 20140910
  Receipt Date: 20140910
  Transmission Date: 20150326
  Serious: Yes (Death, Other)
  Sender: FDA-Public Use
  Company Number: BE-ROCHE-1457243

PATIENT

DRUGS (3)
  1. METHYLPREDNISOLONE [Concomitant]
     Active Substance: METHYLPREDNISOLONE
     Dosage: GIVEN PRIOR TO RITUXIMAB ADMINISTRATION
     Route: 065
  2. RITUXIMAB [Suspect]
     Active Substance: RITUXIMAB
     Indication: RHEUMATOID ARTHRITIS
     Route: 065
  3. PARACETAMOL [Concomitant]
     Active Substance: ACETAMINOPHEN
     Dosage: GIVEN PRIOR TO RITUXIMAB ADMINISTRATION
     Route: 065

REACTIONS (13)
  - Lymphadenopathy [Unknown]
  - Drug ineffective [Unknown]
  - Infection [Unknown]
  - Hepatic enzyme abnormal [Unknown]
  - Infusion related reaction [Unknown]
  - Neoplasm malignant [Unknown]
  - Hallucination [Unknown]
  - Atrial fibrillation [Unknown]
  - Hypertension [Unknown]
  - Fatigue [Unknown]
  - Pneumonia [Fatal]
  - Pancytopenia [Unknown]
  - Pain [Unknown]
